FAERS Safety Report 8576414-5 (Version None)
Quarter: 2012Q3

REPORT INFORMATION
  Report Type: 
  Country: None (occurrence: None)
  Receive Date: 20120807
  Receipt Date: 20120727
  Transmission Date: 20120928
  Serious: Yes (Hospitalization, Other)
  Sender: FDA-Public Use
  Company Number: JP-009507513-2012SP021503

PATIENT

DRUGS (29)
  1. PEGINTERFERON ALFA-2B [Suspect]
     Dosage: UNK
  2. REBETOL [Suspect]
     Dosage: 600 MG, ONCE
     Route: 048
     Dates: start: 20120402, end: 20120513
  3. PEG-INTRON [Suspect]
     Dosage: 80 MICROGRAM PER WEEK
     Route: 058
     Dates: start: 20120402, end: 20120618
  4. LOXONIN [Concomitant]
     Indication: PROPHYLAXIS
     Dosage: FORMULATION: POR, TOTAL DAILY DOSE: 60 MG, CUMULATIVE DOSE: 180 MG, UPDATE (31MAY2012): DURATION
     Route: 048
     Dates: start: 20120111, end: 20120116
  5. [THERAPY UNSPECIFIED] [Concomitant]
     Route: 048
     Dates: start: 20120227, end: 20120611
  6. LENDORMIN D [Concomitant]
     Indication: PROPHYLAXIS
     Dosage: 25 MG, UNK
     Route: 048
     Dates: start: 20120111, end: 20120116
  7. ANTIVIRAL (UNSPECIFIED) [Suspect]
     Dosage: 1500 MG, QD
     Route: 048
     Dates: start: 20120305, end: 20120401
  8. PEGINTERFERON ALFA-2B [Suspect]
     Dosage: 50 MICROGRAM PER KILOGRAM, QW
     Route: 058
     Dates: start: 20120312, end: 20120326
  9. PEGINTERFERON ALFA-2B [Suspect]
     Dosage: 80 MICROGRAM PER KILOGRAM, QW
     Route: 058
     Dates: start: 20120402
  10. PEGINTERFERON ALFA-2B [Suspect]
     Indication: HEPATITIS C
     Dosage: 1.5 MICROGRAM PER KILOGRAM, QW
     Route: 058
     Dates: start: 20120110, end: 20120227
  11. ANTIVIRAL (UNSPECIFIED) [Suspect]
     Indication: HEPATITIS C
     Dosage: 2250 MG, QD
     Route: 048
     Dates: start: 20120110, end: 20120304
  12. PEG-INTRON [Suspect]
     Indication: HEPATITIS C
     Dosage: 1.5 MICROGRAM PER WEEK
     Route: 058
     Dates: start: 20120110, end: 20120227
  13. RABEPRAZOLE SODIUM [Concomitant]
     Indication: PROPHYLAXIS
     Dosage: FORMULATION: POR, TOTAL DALY DOSE: 10 MG, UPDATE (31MAY2012): DURATION
     Route: 048
     Dates: start: 20120119, end: 20120205
  14. HIRUDOID [Concomitant]
     Indication: DRUG ERUPTION
     Dosage: HIRUDOID SOFT OINTMENT 0.3%
     Route: 065
     Dates: start: 20120113
  15. REBETOL [Suspect]
     Dosage: 200 MG, QD
     Route: 048
     Dates: start: 20120227, end: 20120302
  16. PEG-INTRON [Suspect]
     Dosage: 50 MICROGRAM WEEK
     Route: 058
     Dates: start: 20120312, end: 20120326
  17. TELAVIC [Suspect]
     Dosage: 1500 MG, ONCE
     Route: 048
     Dates: start: 20120305, end: 20120401
  18. LOCOID [Concomitant]
     Indication: RASH
     Dosage: UPDATE (31MAY2012): LOCOID OINTMENT 0.1 PERCENT AND STOP DATE
     Route: 065
     Dates: start: 20120124, end: 20120220
  19. REBETOL [Suspect]
     Indication: HEPATITIS C
     Dosage: 600 MG, QD
     Route: 048
     Dates: start: 20120110, end: 20120226
  20. REBETOL [Suspect]
     Dosage: 600 MG, QD
     Route: 048
     Dates: start: 20120402
  21. REBETOL [Suspect]
     Dosage: 400 MG, ONCE
     Route: 048
     Dates: start: 20120514, end: 20120625
  22. LENDORMIN [Concomitant]
     Indication: PROPHYLAXIS
     Dosage: 0.25 MG/DAY, UPDATE (31MAY2012): DURATION
     Route: 048
     Dates: start: 20120111, end: 20120116
  23. LENDORMIN [Concomitant]
     Indication: INSOMNIA
     Dosage: 0.25 MG, QD
     Route: 048
     Dates: start: 20120227
  24. [THERAPY UNSPECIFIED] [Concomitant]
     Indication: PROPHYLAXIS
     Dosage: 150 MG, ONCE
     Route: 048
     Dates: start: 20120111, end: 20120212
  25. XYZAL [Concomitant]
     Indication: PRODUCT USED FOR UNKNOWN INDICATION
     Dosage: 10 MG, QD
     Route: 065
     Dates: start: 20120227
  26. PETROLATUM [Concomitant]
     Indication: PRODUCT USED FOR UNKNOWN INDICATION
     Dosage: TO PROVIDE MOISTURE
     Route: 065
     Dates: start: 20120316
  27. TELAVIC [Suspect]
     Indication: HEPATITIS C
     Dosage: 2250 MG, ONCE
     Route: 048
     Dates: start: 20120110, end: 20120304
  28. MYSER (CYCLOSERINE) [Concomitant]
     Indication: DRUG ERUPTION
     Dosage: MYSER OINTMENT 0.05%
     Route: 065
     Dates: start: 20120113
  29. ELECTROLYTES (UNSPECIFIED) (+) SODIUM LACTATE [Concomitant]
     Indication: PRODUCT USED FOR UNKNOWN INDICATION
     Dosage: UPDATE (31MAY2012):STOP DATE
     Route: 041
     Dates: start: 20120116, end: 20120120

REACTIONS (3)
  - ANAEMIA [None]
  - RENAL IMPAIRMENT [None]
  - DEPRESSION [None]
